FAERS Safety Report 5910250-0 (Version None)
Quarter: 2008Q4

REPORT INFORMATION
  Report Type: 
  Country: None (occurrence: None)
  Receive Date: 20081007
  Receipt Date: 20071101
  Transmission Date: 20090506
  Serious: No
  Sender: FDA-Public Use
  Company Number: US-ASTRAZENECA-2007UW25490

PATIENT
  Age: 77 Year
  Sex: Female

DRUGS (16)
  1. ARIMIDEX [Suspect]
     Route: 048
  2. HYDROCHLOROTHIAZIDE [Concomitant]
  3. NORVASC [Concomitant]
  4. DIOVAN [Concomitant]
  5. SYNTHROID [Concomitant]
  6. NEURONTIN [Concomitant]
  7. POTASSIUM CHLORIDE [Concomitant]
  8. FEMWART [Concomitant]
  9. VIOXX [Concomitant]
  10. COMBAPATCH/ESTROGEN [Concomitant]
  11. NITROFURAN [Concomitant]
  12. ZOCOR [Concomitant]
  13. FOLIC ACID [Concomitant]
  14. MAGNESIUM SULFATE [Concomitant]
  15. LOPRESSOR [Concomitant]
  16. PLENDIL [Concomitant]

REACTIONS (3)
  - COUGH [None]
  - DRY EYE [None]
  - EYE IRRITATION [None]
